FAERS Safety Report 8299626-7 (Version None)
Quarter: 2012Q2

REPORT INFORMATION
  Report Type: 
  Country: None (occurrence: None)
  Receive Date: 20120419
  Receipt Date: 20120409
  Transmission Date: 20120825
  Serious: Yes (Death)
  Sender: FDA-Public Use
  Company Number: JP-GLAXOSMITHKLINE-B0791771A

PATIENT
  Sex: Male

DRUGS (6)
  1. ZOLOFT [Concomitant]
     Indication: BIPOLAR I DISORDER
     Dosage: 50MG PER DAY
     Route: 048
     Dates: start: 20111212
  2. DIAZEPAM [Concomitant]
     Indication: INSOMNIA
     Dosage: 18MG PER DAY
     Route: 048
     Dates: start: 20111212
  3. AMOBAN [Concomitant]
     Indication: INSOMNIA
     Dosage: 7.5MG PER DAY
     Route: 048
     Dates: start: 20120224
  4. SEROQUEL [Concomitant]
     Dosage: 25MG PER DAY
     Route: 048
     Dates: start: 20120224
  5. LAMICTAL [Suspect]
     Indication: BIPOLAR DISORDER
     Dosage: 25MG PER DAY
     Route: 048
     Dates: start: 20120203, end: 20120225
  6. SEROQUEL [Concomitant]
     Indication: INSOMNIA
     Dosage: 12.5MG PER DAY
     Route: 048
     Dates: start: 20120213, end: 20120217

REACTIONS (1)
  - COMPLETED SUICIDE [None]
